FAERS Safety Report 17037767 (Version 6)
Quarter: 2022Q4

REPORT INFORMATION
  Report Type: Spontaneous
  Country: US (occurrence: US)
  Receive Date: 20191115
  Receipt Date: 20221223
  Transmission Date: 20230112
  Serious: Yes (Other)
  Sender: FDA-Public Use
  Company Number: US-PFIZER INC-2019494624

PATIENT
  Age: 73 Year
  Sex: Female
  Weight: 98.88 kg

DRUGS (11)
  1. CALAN SR [Suspect]
     Active Substance: VERAPAMIL HYDROCHLORIDE
     Indication: Atrial fibrillation
     Dosage: 180 MG, 1X/DAY
     Route: 048
  2. CALAN SR [Suspect]
     Active Substance: VERAPAMIL HYDROCHLORIDE
     Indication: Hypertension
     Dosage: 0.5 TABLET, 1X/DAY (1/2 240 MG TABLET)
     Route: 048
  3. CALAN SR [Suspect]
     Active Substance: VERAPAMIL HYDROCHLORIDE
     Dosage: 120 MG, DAILY [240MG TABLET; TAKE 1/2 DAILY BY MOUTH]
     Route: 048
  4. COUMADIN [Concomitant]
     Active Substance: WARFARIN SODIUM
     Indication: Atrial fibrillation
     Dosage: 5 MG, (EVERY MONDAY, WEDNESDAY, FRIDAY AND SUNDAY)
     Route: 048
  5. COUMADIN [Concomitant]
     Active Substance: WARFARIN SODIUM
     Dosage: 2.5 MG, (1/2 TABLET THE REST OF THE WEEK)
  6. COUMADIN [Concomitant]
     Active Substance: WARFARIN SODIUM
     Dosage: 5 MG, UNK [5MG ON MON/WED/FRI ]
  7. COUMADIN [Concomitant]
     Active Substance: WARFARIN SODIUM
     Dosage: 2.5 MG, UNK [2.5MG ON TUE/THUR/SAT/SUN]
  8. ALLOPURINOL [Concomitant]
     Active Substance: ALLOPURINOL
     Indication: Gout
     Dosage: 300 MG, DAILY
  9. ELIQUIS [Concomitant]
     Active Substance: APIXABAN
     Indication: Coagulopathy
     Dosage: UNK, 2X/DAY (ONE IN THE MORNING AND ONE AT NIGHT)
  10. FUROSEMIDE [Concomitant]
     Active Substance: FUROSEMIDE
     Indication: Fluid retention
     Dosage: 20 MG (STARTED WITH 20MG PROBABLY 30-YEARS AGO)
  11. FUROSEMIDE [Concomitant]
     Active Substance: FUROSEMIDE
     Dosage: 40 MG, 1X/DAY

REACTIONS (3)
  - Cataract [Unknown]
  - Body height decreased [Unknown]
  - Weight increased [Unknown]
